FAERS Safety Report 5996805-6 (Version None)
Quarter: 2008Q4

REPORT INFORMATION
  Report Type: 
  Country: None (occurrence: None)
  Receive Date: 20081212
  Receipt Date: 20081027
  Transmission Date: 20090506
  Serious: No
  Sender: FDA-Public Use
  Company Number: US-ABBOTT-08P-163-0483945-00

PATIENT
  Sex: Male

DRUGS (7)
  1. HUMIRA [Suspect]
     Indication: RHEUMATOID ARTHRITIS
     Route: 058
     Dates: start: 20070201
  2. HUMIRA [Suspect]
     Dates: start: 20070201
  3. MEDICATIONS FOR HTN [Concomitant]
     Indication: HYPERTENSION
  4. MEDICATIONS FOR HTN [Concomitant]
     Indication: BLOOD CHOLESTEROL INCREASED
  5. MEDICATIONS FOR HTN [Concomitant]
     Indication: RHEUMATOID ARTHRITIS
  6. UNKNOWN CHOLESTEROL MEDICATION [Concomitant]
     Indication: BLOOD CHOLESTEROL INCREASED
  7. UNKNOWN RHEUMATOID ARTHRITIS MEDICATION [Concomitant]
     Indication: RHEUMATOID ARTHRITIS

REACTIONS (1)
  - INCORRECT DOSE ADMINISTERED [None]
